FAERS Safety Report 7153910-9 (Version None)
Quarter: 2010Q4

REPORT INFORMATION
  Report Type: 
  Country: None (occurrence: None)
  Receive Date: 20101213
  Receipt Date: 20101203
  Transmission Date: 20110411
  Serious: Yes (Hospitalization, Other)
  Sender: FDA-Public Use
  Company Number: BR-ABBOTT-10P-020-0689476-00

PATIENT
  Sex: Female
  Weight: 64 kg

DRUGS (3)
  1. HUMIRA [Suspect]
     Indication: RHEUMATOID ARTHRITIS
     Route: 058
     Dates: start: 20080101, end: 20100601
  2. OMEPRAZOLE [Concomitant]
     Indication: GASTRIC DISORDER
     Route: 048
  3. OMEPRAZOLE [Concomitant]
     Indication: PROPHYLAXIS

REACTIONS (15)
  - ANXIETY [None]
  - COMA [None]
  - CONFUSIONAL STATE [None]
  - FLUID RETENTION [None]
  - GASTRITIS [None]
  - GENERALISED OEDEMA [None]
  - HAEMORRHAGE [None]
  - HERPES VIRUS INFECTION [None]
  - HIATUS HERNIA [None]
  - PAIN [None]
  - PLATELET COUNT DECREASED [None]
  - PUSTULAR PSORIASIS [None]
  - RHEUMATOID ARTHRITIS [None]
  - SWELLING FACE [None]
  - WEIGHT INCREASED [None]
